FAERS Safety Report 11001918 (Version 1)
Quarter: 2015Q2

REPORT INFORMATION
  Report Type: Spontaneous
  Country: AE (occurrence: AE)
  Receive Date: 20150408
  Receipt Date: 20150408
  Transmission Date: 20150821
  Serious: Yes (Other)
  Sender: FDA-Public Use
  Company Number: PHHY2015AE036158

PATIENT

DRUGS (1)
  1. EXJADE [Suspect]
     Active Substance: DEFERASIROX
     Indication: THALASSAEMIA
     Route: 048

REACTIONS (5)
  - Urine analysis abnormal [Unknown]
  - Lethargy [Unknown]
  - Renal tubular acidosis [Recovered/Resolved]
  - Flank pain [Unknown]
  - Urine output decreased [Unknown]
